FAERS Safety Report 17820556 (Version 1)
Quarter: 2020Q2

REPORT INFORMATION
  Report Type: Spontaneous
  Country: IT (occurrence: IT)
  Receive Date: 20200525
  Receipt Date: 20200525
  Transmission Date: 20200714
  Serious: Yes (Disabling)
  Sender: FDA-Public Use
  Company Number: NVSC2020IT138785

PATIENT
  Age: 59 Year
  Sex: Male
  Weight: 77 kg

DRUGS (1)
  1. ADOPORT [Suspect]
     Active Substance: TACROLIMUS
     Indication: IMMUNOSUPPRESSANT DRUG THERAPY
     Dosage: 2 MG, QD
     Route: 048
     Dates: start: 20180220

REACTIONS (2)
  - Paraesthesia [Unknown]
  - Muscular weakness [Unknown]

NARRATIVE: CASE EVENT DATE: 20180220
